FAERS Safety Report 5309634-3 (Version None)
Quarter: 2007Q2

REPORT INFORMATION
  Report Type: 
  Country: None (occurrence: None)
  Receive Date: 20070427
  Receipt Date: 20060619
  Transmission Date: 20071010
  Serious: No
  Sender: FDA-Public Use
  Company Number: US-GLAXOSMITHKLINE-A0609548A

PATIENT
  Age: 48 Year
  Sex: Male

DRUGS (2)
  1. DEXEDRINE [Suspect]
     Indication: NARCOLEPSY
     Dosage: 18CAP PER DAY
     Route: 048
     Dates: start: 20060522
  2. DEXEDRINE [Suspect]
     Dosage: 18TAB PER DAY
     Route: 048
     Dates: start: 19970101

REACTIONS (2)
  - DRUG INEFFECTIVE [None]
  - OVERDOSE [None]
